FAERS Safety Report 20135243 (Version 1)
Quarter: 2021Q4

REPORT INFORMATION
  Report Type: Spontaneous
  Country: US (occurrence: None)
  Receive Date: 20211130
  Receipt Date: 20211130
  Transmission Date: 20220303
  Serious: No
  Sender: FDA-Public Use
  Company Number: None

PATIENT
  Age: 78 Year
  Sex: Female
  Weight: 43.2 kg

DRUGS (16)
  1. CAPECITABINE [Suspect]
     Active Substance: CAPECITABINE
     Indication: Colon cancer
     Dosage: OTHER FREQUENCY : AM,1.5PMX14/21DAYS;?
     Route: 048
     Dates: start: 20201210, end: 20211130
  2. Norvasc 2.5mg [Concomitant]
  3. VOLTAREN [Concomitant]
     Active Substance: DICLOFENAC SODIUM
  4. ERGOCALCIFEROL [Concomitant]
     Active Substance: ERGOCALCIFEROL
  5. MAXALT [Concomitant]
     Active Substance: RIZATRIPTAN BENZOATE
  6. Meclizine 25mg [Concomitant]
  7. OMEPRAZOLE [Concomitant]
     Active Substance: OMEPRAZOLE
  8. SYNTHROID [Concomitant]
     Active Substance: LEVOTHYROXINE SODIUM
  9. Clobetasol propionate 0.025% [Concomitant]
  10. ICAPS AREDS FORMULA [Concomitant]
  11. DEXAMETHASONE [Concomitant]
     Active Substance: DEXAMETHASONE
  12. Norco 7.5-325mg [Concomitant]
  13. ONDANSETRON [Concomitant]
     Active Substance: ONDANSETRON
  14. Prochlorperazine 5mg [Concomitant]
  15. VITAMINS [Concomitant]
     Active Substance: VITAMINS
  16. Calcium + D3 600mg-800IU [Concomitant]

REACTIONS (1)
  - Hospice care [None]

NARRATIVE: CASE EVENT DATE: 20211130
